FAERS Safety Report 6508342-0 (Version None)
Quarter: 2009Q4

REPORT INFORMATION
  Report Type: 
  Country: None (occurrence: None)
  Receive Date: 20091221
  Receipt Date: 20081112
  Transmission Date: 20100525
  Serious: No
  Sender: FDA-Public Use
  Company Number: US-ASTRAZENECA-2008UW11077

PATIENT
  Age: 34 Year
  Sex: Male

DRUGS (5)
  1. CRESTOR [Suspect]
     Indication: BLOOD CHOLESTEROL INCREASED
     Route: 048
     Dates: start: 20080401
  2. CRESTOR [Suspect]
     Route: 048
     Dates: start: 20050101, end: 20060101
  3. CRESTOR [Suspect]
     Route: 048
  4. CIPRO [Concomitant]
  5. LEVAQUIN [Concomitant]

REACTIONS (10)
  - ABDOMINAL PAIN [None]
  - ABDOMINAL PAIN UPPER [None]
  - COLITIS [None]
  - CONTUSION [None]
  - HAEMANGIOMA [None]
  - MUCOUS STOOLS [None]
  - NAUSEA [None]
  - PETECHIAE [None]
  - PRURITUS GENERALISED [None]
  - URINARY TRACT DISORDER [None]
